FAERS Safety Report 6888980-6 (Version None)
Quarter: 2010Q3

REPORT INFORMATION
  Report Type: 
  Country: None (occurrence: None)
  Receive Date: 20100730
  Receipt Date: 20071205
  Transmission Date: 20110219
  Serious: Yes (Other)
  Sender: FDA-Public Use
  Company Number: US-PFIZER INC-2007102660

PATIENT
  Sex: Male

DRUGS (5)
  1. LIPITOR [Suspect]
  2. CADUET [Suspect]
  3. ACIPHEX [Concomitant]
  4. PAROXETINE HCL [Concomitant]
  5. PLAVIX [Concomitant]

REACTIONS (1)
  - AMNESIA [None]
